FAERS Safety Report 19349451 (Version 1)
Quarter: 2021Q2

REPORT INFORMATION
  Report Type: Spontaneous
  Country: US (occurrence: US)
  Receive Date: 20210530
  Receipt Date: 20210530
  Transmission Date: 20210717
  Serious: Yes (Death, Life-Threatening)
  Sender: FDA-Public Use
  Company Number: None

PATIENT
  Age: 56 Year
  Sex: Female
  Weight: 74.4 kg

DRUGS (3)
  1. TACROLIMUS. [Concomitant]
     Active Substance: TACROLIMUS
     Dates: start: 20210515, end: 20210529
  2. BELATACEPT VIAL 250 MG [Suspect]
     Active Substance: BELATACEPT
     Indication: LUNG TRANSPLANT
     Dosage: ?          OTHER FREQUENCY:WEEKLY;?
     Route: 041
     Dates: start: 20210516, end: 20210529
  3. PREDNISONE. [Concomitant]
     Active Substance: PREDNISONE
     Dates: start: 20210515, end: 20210529

REACTIONS (7)
  - Dyspnoea [None]
  - Pulseless electrical activity [None]
  - Cardiac arrest [None]
  - Anaemia [None]
  - Haemothorax [None]
  - Hypotension [None]
  - Haemodynamic instability [None]

NARRATIVE: CASE EVENT DATE: 20210529
